FAERS Safety Report 10710885 (Version 1)
Quarter: 2015Q1

REPORT INFORMATION
  Report Type: Spontaneous
  Country: GB (occurrence: None)
  Receive Date: 20150112
  Receipt Date: 20150112
  Transmission Date: 20150721
  Serious: Yes (Death, Hospitalization)
  Sender: FDA-Public Use
  Company Number: GBR-SPN-2004016

PATIENT
  Age: 9 Year
  Sex: Female

DRUGS (4)
  1. SODIUM PHENYLBUTYRATE. [Concomitant]
     Active Substance: SODIUM PHENYLBUTYRATE
  2. SODIUM BENZOATE [Concomitant]
     Active Substance: SODIUM BENZOATE
  3. ANTIBIOTICS [Concomitant]
     Active Substance: UNSPECIFIED INGREDIENT
  4. CARBAGLU [Suspect]
     Active Substance: CARGLUMIC ACID
     Indication: HYPERAMMONAEMIA
     Dosage: 400 MG EVERY DAY, ORAL?
     Route: 048
     Dates: start: 20020531

REACTIONS (14)
  - Hyperammonaemia [None]
  - Unevaluable event [None]
  - Pneumonia [None]
  - Multi-organ failure [None]
  - Pyrexia [None]
  - Encephalopathy [None]
  - Vomiting [None]
  - Dyskinesia [None]
  - Screaming [None]
  - Oliguria [None]
  - Hallucination [None]
  - Meningeal disorder [None]
  - Bradypnoea [None]
  - Underdose [None]

NARRATIVE: CASE EVENT DATE: 20031029
